FAERS Safety Report 7804644-6 (Version None)
Quarter: 2011Q4

REPORT INFORMATION
  Report Type: 
  Country: None (occurrence: None)
  Receive Date: 20111010
  Receipt Date: 20110927
  Transmission Date: 20120403
  Serious: Yes (Hospitalization)
  Sender: FDA-Public Use
  Company Number: RO-SANOFI-AVENTIS-2011SA061343

PATIENT
  Age: 28 Year
  Sex: Male

DRUGS (6)
  1. OLANZAPINE [Suspect]
     Indication: BIPOLAR DISORDER
     Route: 065
     Dates: start: 20080201, end: 20080601
  2. CLONAZEPAM [Concomitant]
     Indication: BIPOLAR DISORDER
  3. ENOXAPARIN SODIUM [Suspect]
     Dosage: 2X1 MG/KG S.C
     Route: 058
     Dates: start: 20080601, end: 20080601
  4. HEPARIN [Suspect]
     Route: 065
     Dates: start: 20080601, end: 20080601
  5. SINTROM [Suspect]
     Dosage: TITRATED TO EFFICIENCY
     Route: 048
     Dates: start: 20080601
  6. VALPROIC ACID [Concomitant]
     Indication: BIPOLAR DISORDER

REACTIONS (14)
  - DYSPNOEA [None]
  - SINUS TACHYCARDIA [None]
  - OVERDOSE [None]
  - PYREXIA [None]
  - CYANOSIS [None]
  - FIBRIN D DIMER INCREASED [None]
  - ELECTROCARDIOGRAM CHANGE [None]
  - PLEURISY [None]
  - HAEMOPTYSIS [None]
  - PULMONARY INFARCTION [None]
  - RIGHT VENTRICULAR FAILURE [None]
  - PULMONARY EMBOLISM [None]
  - PLEURAL EFFUSION [None]
  - PLEURITIC PAIN [None]
